FAERS Safety Report 5031784-X (Version None)
Quarter: 2006Q2

REPORT INFORMATION
  Report Type: 
  Country: None (occurrence: None)
  Receive Date: 20060619
  Receipt Date: 20060606
  Transmission Date: 20061013
  Serious: Yes (Other)
  Sender: FDA-Public Use
  Company Number: 2006-06-0186

PATIENT
  Age: 48 Year
  Sex: Male

DRUGS (1)
  1. PEG-INTRON [Suspect]
     Indication: HEPATITIS C
     Dosage: 40 UG QWK SUBCUTANEOUS
     Route: 058
     Dates: start: 20031028

REACTIONS (3)
  - DIABETES MELLITUS INSULIN-DEPENDENT [None]
  - GLUCOSE URINE PRESENT [None]
  - PROSTATITIS [None]
